FAERS Safety Report 24190698 (Version 3)
Quarter: 2024Q3

REPORT INFORMATION
  Report Type: Spontaneous
  Country: US (occurrence: US)
  Receive Date: 20240808
  Receipt Date: 20240903
  Transmission Date: 20241016
  Serious: No
  Sender: TAIHO ONCOLOGY INC
  Company Number: US-TAIHOP-2024-007521

PATIENT

DRUGS (1)
  1. LONSURF [Suspect]
     Active Substance: TIPIRACIL HYDROCHLORIDE\TRIFLURIDINE
     Indication: Colon cancer
     Dosage: CYCLE UNKNOWN?CURRENT CYCLE START DATE: 26/JUN/2024
     Route: 048

REACTIONS (2)
  - Product dose omission in error [Unknown]
  - Product packaging quantity issue [Unknown]
